FAERS Safety Report 4543092-1 (Version None)
Quarter: 2004Q4

REPORT INFORMATION
  Report Type: 
  Country: None (occurrence: None)
  Receive Date: 20041229
  Receipt Date: 20041229
  Transmission Date: 20050328
  Serious: Yes (Death, Hospitalization)
  Sender: FDA-Public Use
  Company Number: None

PATIENT
  Age: 67 Year
  Sex: Female
  Weight: 104.9 kg

DRUGS (16)
  1. CELEBREX [Suspect]
     Indication: ARTHRITIS
     Dosage: 100 MG PO DAILY
     Route: 048
  2. PRILOSEC [Concomitant]
  3. SYNTHROID [Concomitant]
  4. PREDNISONE [Concomitant]
  5. FOLIC ACID [Concomitant]
  6. OSCAL D [Concomitant]
  7. SENNA [Concomitant]
  8. NEURONTIN [Concomitant]
  9. MS CONTIN [Concomitant]
  10. ACTONEL [Concomitant]
  11. MIACALCIN [Concomitant]
  12. TYLENOL W/ CODEINE NO. 3 [Concomitant]
  13. MOM [Concomitant]
  14. SARNA [Concomitant]
  15. FLUOCINONIDE [Concomitant]
  16. BISACODYL SUPP [Concomitant]

REACTIONS (7)
  - BRADYCARDIA [None]
  - CARDIO-RESPIRATORY ARREST [None]
  - HAEMATEMESIS [None]
  - HYPOTENSION [None]
  - LETHARGY [None]
  - OESOPHAGEAL DISORDER [None]
  - WEIGHT DECREASED [None]
